FAERS Safety Report 6720758-6 (Version None)
Quarter: 2010Q2

REPORT INFORMATION
  Report Type: 
  Country: None (occurrence: None)
  Receive Date: 20100512
  Receipt Date: 20100503
  Transmission Date: 20101027
  Serious: Yes (Hospitalization)
  Sender: FDA-Public Use
  Company Number: 2009BI031828

PATIENT
  Age: 55 Year
  Sex: Female

DRUGS (1)
  1. TYSABRI [Suspect]
     Indication: MULTIPLE SCLEROSIS
     Route: 042
     Dates: start: 20080623, end: 20091222

REACTIONS (3)
  - BLOOD COUNT ABNORMAL [None]
  - DRUG INEFFECTIVE [None]
  - LOSS OF CONTROL OF LEGS [None]
